FAERS Safety Report 6470489-5 (Version None)
Quarter: 2009Q4

REPORT INFORMATION
  Report Type: 
  Country: None (occurrence: None)
  Receive Date: 20091203
  Receipt Date: 20091123
  Transmission Date: 20100525
  Serious: Yes (Other)
  Sender: FDA-Public Use
  Company Number: US-WYE-H12295209

PATIENT
  Sex: Female
  Weight: 59.02 kg

DRUGS (1)
  1. PRISTIQ [Suspect]
     Indication: HOT FLUSH
     Route: 048
     Dates: start: 20080101, end: 20091116

REACTIONS (3)
  - RENAL CANCER [None]
  - RENAL MASS [None]
  - URINARY TRACT INFECTION [None]
